FAERS Safety Report 13849534 (Version 1)
Quarter: 2017Q3

REPORT INFORMATION
  Report Type: Spontaneous
  Country: US (occurrence: US)
  Receive Date: 20170809
  Receipt Date: 20170809
  Transmission Date: 20171127
  Serious: No
  Sender: FDA-Public Use
  Company Number: US-PFIZER INC-2017338848

PATIENT
  Age: 47 Year
  Sex: Male
  Weight: 86.6 kg

DRUGS (9)
  1. HYDROCODONE BITARTRATE AND ACETAMINOPHEN [Concomitant]
     Active Substance: ACETAMINOPHEN\HYDROCODONE BITARTRATE
     Dosage: UNK, AS NEEDED, ([HYDROCODONE BITARTRATE 5 MG, PARACETAMOL 325 MG], Q6HR)
     Route: 048
  2. PRAVASTATIN. [Concomitant]
     Active Substance: PRAVASTATIN
     Dosage: 20 MG, ONCE A DAY, (AT BEDTIME)
     Route: 048
  3. METFORMIN [Concomitant]
     Active Substance: METFORMIN HYDROCHLORIDE
     Dosage: 500 MG, DAILY
     Route: 048
  4. METHOTREXATE SODIUM. [Suspect]
     Active Substance: METHOTREXATE SODIUM
     Indication: PSORIATIC ARTHROPATHY
     Dosage: UNK
     Dates: start: 2003, end: 201505
  5. LOSARTAN. [Concomitant]
     Active Substance: LOSARTAN
     Dosage: 50 MG, DAILY
     Route: 048
  6. BETAMETHASONE DIPROPIONATE. [Concomitant]
     Active Substance: BETAMETHASONE DIPROPIONATE
     Dosage: UNK, 0.05% TOPICAL OINTMENT, 1 APP, BID
     Route: 061
  7. DESONIDE. [Concomitant]
     Active Substance: DESONIDE
     Dosage: UNK, DAILY, (0.05% TOPICAL CREAM, 1 APP)
     Route: 061
  8. ENBREL [Concomitant]
     Active Substance: ETANERCEPT
     Dosage: 1 ML, WEEKLY
     Route: 058
  9. SULFASALAZINE. [Concomitant]
     Active Substance: SULFASALAZINE
     Dosage: UNK
     Dates: start: 2004, end: 2008

REACTIONS (1)
  - Alopecia [Unknown]
